FAERS Safety Report 10049388 (Version 2)
Quarter: 2014Q2

REPORT INFORMATION
  Report Type: Spontaneous
  Country: US (occurrence: US)
  Receive Date: 20140401
  Receipt Date: 20140528
  Transmission Date: 20141212
  Serious: Yes (Other)
  Sender: FDA-Public Use
  Company Number: US-BRISTOL-MYERS SQUIBB COMPANY-20545570

PATIENT
  Sex: Female

DRUGS (7)
  1. ABILIFY [Suspect]
     Indication: BIPOLAR DISORDER
     Dates: start: 20140314
  2. DILTIAZEM CD [Concomitant]
  3. LEVOTHYROXIN [Concomitant]
  4. MULTIVITAMIN [Concomitant]
  5. VITAMIN B12 [Concomitant]
  6. FISH OIL [Concomitant]
     Dosage: AT NIGHT
  7. CALCIUM [Concomitant]
     Dosage: AT NIGHT

REACTIONS (5)
  - Headache [Recovering/Resolving]
  - Chest pain [Recovered/Resolved]
  - Rash pruritic [Unknown]
  - Eye pain [Unknown]
  - Feeling jittery [Unknown]
